FAERS Safety Report 14634374 (Version 1)
Quarter: 2018Q1

REPORT INFORMATION
  Report Type: Spontaneous
  Country: US (occurrence: US)
  Receive Date: 20180314
  Receipt Date: 20180314
  Transmission Date: 20180509
  Serious: No
  Sender: FDA-Public Use
  Company Number: US-UNICHEM PHARMACEUTICALS (USA) INC-UCM201801-000005

PATIENT
  Sex: Female

DRUGS (1)
  1. QUETIAPINE FUMARATE 400 MG TABLET [Suspect]
     Active Substance: QUETIAPINE FUMARATE

REACTIONS (1)
  - Product use issue [Unknown]
